FAERS Safety Report 16363865 (Version 1)
Quarter: 2019Q2

REPORT INFORMATION
  Report Type: Spontaneous
  Country: TW (occurrence: TW)
  Receive Date: 20190528
  Receipt Date: 20190528
  Transmission Date: 20190711
  Serious: Yes (Hospitalization)
  Sender: FDA-Public Use
  Company Number: TW-ANIPHARMA-2019-TW-000007

PATIENT
  Age: 20 Month
  Sex: Male

DRUGS (3)
  1. MORPHINE SULFATE ORAL SOLUTION (NON-SPECIFIC) [Suspect]
     Active Substance: MORPHINE SULFATE
     Indication: PRODUCT USED FOR UNKNOWN INDICATION
  2. AMPHETAMINE [Suspect]
     Active Substance: AMPHETAMINE
     Indication: PRODUCT USED FOR UNKNOWN INDICATION
  3. KETAMINE [Suspect]
     Active Substance: KETAMINE
     Indication: PRODUCT USED FOR UNKNOWN INDICATION

REACTIONS (6)
  - Multiple organ dysfunction syndrome [Recovered/Resolved]
  - Rhabdomyolysis [Recovered/Resolved]
  - Acute kidney injury [Recovered/Resolved]
  - Collagen disorder [Recovered/Resolved]
  - Cutaneous calcification [Recovered/Resolved]
  - Acute respiratory distress syndrome [Recovered/Resolved]
